FAERS Safety Report 19420831 (Version 1)
Quarter: 2021Q2

REPORT INFORMATION
  Report Type: Spontaneous
  Country: IT (occurrence: IT)
  Receive Date: 20210616
  Receipt Date: 20210616
  Transmission Date: 20210717
  Serious: Yes (Hospitalization)
  Sender: FDA-Public Use
  Company Number: IT-AUROBINDO-AUR-APL-2021-024554

PATIENT
  Age: 65 Year
  Sex: Female

DRUGS (2)
  1. VORTIOXETINE. [Suspect]
     Active Substance: VORTIOXETINE
     Indication: MENTAL DISORDER
     Dosage: 10 MILLIGRAM, ONCE A DAY
     Route: 065
  2. CITALOPRAM [Suspect]
     Active Substance: CITALOPRAM HYDROBROMIDE
     Indication: MENTAL DISORDER
     Dosage: 8 MILLIGRAM
     Route: 065

REACTIONS (7)
  - Product use in unapproved indication [Unknown]
  - Prescribed underdose [Unknown]
  - Flat affect [Unknown]
  - Therapeutic response decreased [Unknown]
  - Nausea [Unknown]
  - Restlessness [Unknown]
  - Akathisia [Unknown]
